FAERS Safety Report 16982006 (Version 4)
Quarter: 2022Q2

REPORT INFORMATION
  Report Type: Report from Study
  Country: US (occurrence: US)
  Receive Date: 20191101
  Receipt Date: 20220630
  Transmission Date: 20220721
  Serious: Yes (Hospitalization, Other)
  Sender: FDA-Public Use
  Company Number: US-ACADIA PHARMACEUTICALS INC.-ACA-2019-014387

PATIENT
  Age: 79 Year
  Sex: Male

DRUGS (1)
  1. NUPLAZID [Suspect]
     Active Substance: PIMAVANSERIN TARTRATE
     Indication: Parkinson^s disease
     Dosage: 34 MG, QD
     Route: 048

REACTIONS (9)
  - Unresponsive to stimuli [Recovered/Resolved]
  - Orthostatic hypotension [Recovered/Resolved]
  - Amnesia [Unknown]
  - Presyncope [Recovered/Resolved]
  - Fall [Unknown]
  - Aphasia [Unknown]
  - Gait inability [Unknown]
  - Weight decreased [Unknown]
  - Somnolence [Unknown]

NARRATIVE: CASE EVENT DATE: 20180522
